FAERS Safety Report 8110374-6 (Version None)
Quarter: 2012Q1

REPORT INFORMATION
  Report Type: 
  Country: None (occurrence: None)
  Receive Date: 20120202
  Receipt Date: 20120127
  Transmission Date: 20120608
  Serious: Yes (Hospitalization)
  Sender: FDA-Public Use
  Company Number: US-ASTRAZENECA-2012SE05910

PATIENT
  Age: 67 Year
  Sex: Female

DRUGS (11)
  1. SEROQUEL XR [Suspect]
     Indication: BIPOLAR DISORDER
     Route: 048
     Dates: start: 20120118, end: 20120125
  2. ASPIRIN [Concomitant]
  3. DOMEPIZE [Concomitant]
  4. BUPROPION HCL [Concomitant]
  5. MAGNESIUM [Concomitant]
  6. ALLOPURINOL [Concomitant]
  7. PARICOCALIPOL [Concomitant]
  8. OMEPRAZOLE [Concomitant]
  9. FENTANYL-100 [Concomitant]
  10. COLACE [Concomitant]
  11. AMLODIPINE [Concomitant]

REACTIONS (1)
  - HEPATITIS [None]
